FAERS Safety Report 11149157 (Version 1)
Quarter: 2015Q2

REPORT INFORMATION
  Report Type: Spontaneous
  Country: CN (occurrence: CN)
  Receive Date: 20150529
  Receipt Date: 20150529
  Transmission Date: 20150821
  Serious: Yes (Other)
  Sender: FDA-Public Use
  Company Number: CN-GLAXOSMITHKLINE-CN2015GSK052221

PATIENT
  Age: 49 Year
  Sex: Female

DRUGS (18)
  1. AMOXYCILLIN + POTASSIUM CLAVULANATE [Suspect]
     Active Substance: AMOXICILLIN\CLAVULANATE POTASSIUM
     Indication: ADHESIOLYSIS
  2. ESMERON [Suspect]
     Active Substance: ROCURONIUM BROMIDE
     Indication: HYSTERECTOMY
     Dosage: UNK
     Dates: start: 20150317
  3. FENTANYL INJECTION [Suspect]
     Active Substance: FENTANYL
     Indication: ADHESIOLYSIS
  4. ONDANSETRON HYDROCHLORIDE. [Suspect]
     Active Substance: ONDANSETRON HYDROCHLORIDE
     Indication: ADHESIOLYSIS
  5. AMOXYCILLIN + POTASSIUM CLAVULANATE [Suspect]
     Active Substance: AMOXICILLIN\CLAVULANATE POTASSIUM
     Indication: HYSTERECTOMY
     Dosage: 1.2 G, UNK
  6. SEVOFLURANE. [Suspect]
     Active Substance: SEVOFLURANE
     Indication: HYSTERECTOMY
     Dosage: UNK
     Dates: start: 20150317
  7. METRONIDAZOLE DISODIUM PHOSPHATE [Suspect]
     Active Substance: METRONIDAZOLE
     Indication: ADHESIOLYSIS
  8. FENTANYL INJECTION [Suspect]
     Active Substance: FENTANYL
     Indication: HYSTERECTOMY
     Dosage: UNK
     Dates: start: 20150317
  9. MORPHINE INJECTION [Suspect]
     Active Substance: MORPHINE
     Indication: ADHESIOLYSIS
  10. METRONIDAZOLE DISODIUM PHOSPHATE [Suspect]
     Active Substance: METRONIDAZOLE
     Indication: HYSTERECTOMY
     Dosage: UNK
  11. MORPHINE INJECTION [Suspect]
     Active Substance: MORPHINE
     Indication: HYSTERECTOMY
     Dosage: UNK
     Dates: start: 20150317
  12. ONDANSETRON HYDROCHLORIDE. [Suspect]
     Active Substance: ONDANSETRON HYDROCHLORIDE
     Indication: HYSTERECTOMY
     Dosage: UNK
     Dates: start: 20150317
  13. DIPRIVAN [Suspect]
     Active Substance: PROPOFOL
     Indication: HYSTERECTOMY
     Dosage: UNK
     Dates: start: 20150317
  14. SEVOFLURANE. [Suspect]
     Active Substance: SEVOFLURANE
     Indication: ADHESIOLYSIS
  15. HYDROXYETHYL STARCH IN SODIUM CHLORIDE [Suspect]
     Active Substance: HYDROXYETHYL STARCH 130/0.4\SODIUM CHLORIDE
     Indication: ADHESIOLYSIS
  16. DIPRIVAN [Suspect]
     Active Substance: PROPOFOL
     Indication: ADHESIOLYSIS
  17. ESMERON [Suspect]
     Active Substance: ROCURONIUM BROMIDE
     Indication: ADHESIOLYSIS
  18. HYDROXYETHYL STARCH IN SODIUM CHLORIDE [Suspect]
     Active Substance: HYDROXYETHYL STARCH 130/0.4\SODIUM CHLORIDE
     Indication: HYSTERECTOMY
     Dosage: UNK
     Dates: start: 20150317

REACTIONS (3)
  - Anuria [Unknown]
  - Product quality issue [Unknown]
  - Blood creatinine increased [Unknown]

NARRATIVE: CASE EVENT DATE: 201503
